FAERS Safety Report 9525724 (Version 1)
Quarter: 2013Q1

REPORT INFORMATION
  Report Type: Spontaneous
  Country: US (occurrence: None)
  Receive Date: 20130314
  Receipt Date: 20130314
  Transmission Date: 20140127
  Serious: No
  Sender: FDA-Public Use
  Company Number: 1212USA011152

PATIENT
  Sex: Male

DRUGS (5)
  1. VICTRELIS (BOCEPREVIR) CAPSULE, 200MG [Suspect]
     Dosage: 200 MG, TAKE 4 CAPSULES BY MOUTH 3 TIMES A DAY, ORAL
  2. PEGINTRON (PEGINTERFERON ALFA-2B) POWDER FOR INJECTION [Suspect]
     Dosage: 120 MICROGRAM/0.5 ML, QW, PEG-INTRON KIT 120 RP, SUBCUTANEOUS
  3. TIMOLOL MALEATE [Concomitant]
  4. LOVAZA [Concomitant]
  5. TRAVATAN (TRAVOPROST) [Concomitant]

REACTIONS (8)
  - Mood swings [None]
  - Balance disorder [None]
  - Visual impairment [None]
  - Pain [None]
  - Chills [None]
  - Fatigue [None]
  - Irritability [None]
  - Dizziness [None]
